FAERS Safety Report 8168397-7 (Version None)
Quarter: 2012Q1

REPORT INFORMATION
  Report Type: 
  Country: None (occurrence: None)
  Receive Date: 20120227
  Receipt Date: 20120222
  Transmission Date: 20120608
  Serious: Yes (Other)
  Sender: FDA-Public Use
  Company Number: GB-MERCK-1202GBR00125

PATIENT
  Age: 55 Year
  Sex: Male
  Weight: 73 kg

DRUGS (12)
  1. LOPERAMIDE HYDROCHLORIDE [Concomitant]
     Route: 065
  2. ACETAMINOPHEN [Concomitant]
     Route: 065
  3. ALBUTEROL [Concomitant]
     Route: 065
  4. TAMSULOSIN HYDROCHLORIDE [Concomitant]
     Route: 065
  5. OMEPRAZOLE [Concomitant]
     Route: 065
  6. CANCIDAS [Suspect]
     Indication: SEPSIS
     Route: 042
     Dates: start: 20120126, end: 20120206
  7. CITALOPRAM [Concomitant]
     Route: 065
  8. ONDANSETRON [Concomitant]
     Route: 065
  9. COLISTIMETHATE SODIUM [Suspect]
     Indication: SEPSIS
     Route: 042
     Dates: start: 20120126, end: 20120206
  10. ENOXAPARIN SODIUM [Concomitant]
     Route: 065
  11. POLIHEXANIDE AND UNDECYLENAMIDOPROPYL BETAINE [Concomitant]
     Route: 065
  12. SODIUM BICARBONATE [Concomitant]
     Route: 065

REACTIONS (2)
  - NEPHROPATHY TOXIC [None]
  - BLOOD CREATININE INCREASED [None]
